FAERS Safety Report 6744768 (Version 1)
Quarter: 2020Q3

REPORT INFORMATION
  Report Type: Report from Study
  Country: US (occurrence: US)
  Receive Date: 20080902
  Receipt Date: 20080902
  Transmission Date: 20201104
  Serious: Yes (Hospitalization)
  Sender: FDA-Public Use
  Company Number: US-ROCHE-582343

PATIENT
  Age: 81 Year
  Sex: Female

DRUGS (4)
  1. IBANDRONIC ACID. [Suspect]
     Active Substance: IBANDRONIC ACID
     Indication: OSTEOPOROSIS
     Route: 048
     Dates: start: 2005, end: 200603
  2. UNKNOWN HYPERTENSION DRUG [Concomitant]
     Indication: BLOOD PRESSURE INCREASED
  3. CALCIUM [Concomitant]
     Active Substance: CALCIUM
  4. WATER PILL NOS [Concomitant]

REACTIONS (4)
  - Inappropriate schedule of product administration [None]
  - Nausea [Recovering/Resolving]
  - Dysphagia [Not Recovered/Not Resolved]
  - Dehydration [Recovering/Resolving]

NARRATIVE: CASE EVENT DATE: 20060301
